FAERS Safety Report 20082570 (Version 1)
Quarter: 2021Q4

REPORT INFORMATION
  Report Type: Spontaneous
  Country: FR (occurrence: FR)
  Receive Date: 20211117
  Receipt Date: 20211117
  Transmission Date: 20220303
  Serious: Yes (Hospitalization)
  Sender: FDA-Public Use
  Company Number: None

PATIENT
  Age: 40 Year
  Sex: Male

DRUGS (2)
  1. NAPROXEN SODIUM [Suspect]
     Active Substance: NAPROXEN SODIUM
     Indication: Toothache
     Dosage: 550 MG, BID
     Route: 048
     Dates: start: 20210923, end: 20210924
  2. ACETAMINOPHEN [Concomitant]
     Active Substance: ACETAMINOPHEN
     Indication: Toothache
     Dosage: 2 G, QD
     Route: 048
     Dates: start: 20210923

REACTIONS (1)
  - Oedematous pancreatitis [Unknown]

NARRATIVE: CASE EVENT DATE: 20210924
